FAERS Safety Report 13204933 (Version 1)
Quarter: 2017Q1

REPORT INFORMATION
  Report Type: Spontaneous
  Country: US (occurrence: US)
  Receive Date: 20170209
  Receipt Date: 20170209
  Transmission Date: 20170428
  Serious: Yes (Hospitalization, Other)
  Sender: FDA-Public Use
  Company Number: US-AMGEN-USASP2017018328

PATIENT
  Age: 85 Year
  Sex: Female

DRUGS (6)
  1. OXYCODONE/APAP [Concomitant]
     Active Substance: ACETAMINOPHEN\OXYCODONE HYDROCHLORIDE
     Dosage: UNK UNK, AS NECESSARY
  2. PROLIA [Suspect]
     Active Substance: DENOSUMAB
     Indication: OSTEOPOROSIS
     Dosage: UNK, Q6MO
     Route: 058
     Dates: start: 201503, end: 201604
  3. VITAMIN D [Concomitant]
     Active Substance: CHOLECALCIFEROL
     Dosage: 600 IU, UNK
  4. LOSARTAN. [Concomitant]
     Active Substance: LOSARTAN
     Indication: HYPERTENSION
     Dosage: 50 MG, QD
  5. CALCIUM [Concomitant]
     Active Substance: CALCIUM
     Indication: BONE DISORDER
     Dosage: UNK
  6. PROTONIX [Concomitant]
     Active Substance: PANTOPRAZOLE SODIUM
     Indication: GASTRIC HAEMORRHAGE
     Dosage: 40 MG, QD

REACTIONS (18)
  - Weight decreased [Unknown]
  - Arthralgia [Unknown]
  - Asthenia [Unknown]
  - Abasia [Not Recovered/Not Resolved]
  - Pyrexia [Recovered/Resolved]
  - Dysphagia [Not Recovered/Not Resolved]
  - Memory impairment [Not Recovered/Not Resolved]
  - Toothache [Unknown]
  - Reading disorder [Not Recovered/Not Resolved]
  - Decreased appetite [Unknown]
  - General physical health deterioration [Unknown]
  - Walking aid user [Not Recovered/Not Resolved]
  - Urinary tract infection [Recovering/Resolving]
  - Chills [Unknown]
  - Musculoskeletal discomfort [Unknown]
  - Abscess [Unknown]
  - Lung infiltration [Not Recovered/Not Resolved]
  - Influenza like illness [Unknown]

NARRATIVE: CASE EVENT DATE: 2016
